FAERS Safety Report 25225088 (Version 1)
Quarter: 2025Q2

REPORT INFORMATION
  Report Type: Spontaneous
  Country: US (occurrence: US)
  Receive Date: 20250422
  Receipt Date: 20250422
  Transmission Date: 20250716
  Serious: Yes (Other)
  Sender: MERCK SHARP & DOHME LLC
  Company Number: US-009507513-2277139

PATIENT
  Age: 58 Year
  Sex: Female

DRUGS (1)
  1. PEMBROLIZUMAB [Suspect]
     Active Substance: PEMBROLIZUMAB
     Indication: Metastatic malignant melanoma
     Route: 065
     Dates: start: 202007, end: 202009

REACTIONS (2)
  - Immune-mediated enterocolitis [Unknown]
  - Immune-mediated hepatitis [Unknown]

NARRATIVE: CASE EVENT DATE: 20200101
